FAERS Safety Report 15783337 (Version 2)
Quarter: 2019Q1

REPORT INFORMATION
  Report Type: Spontaneous
  Country: US (occurrence: US)
  Receive Date: 20190102
  Receipt Date: 20190215
  Transmission Date: 20190417
  Serious: No
  Sender: FDA-Public Use
  Company Number: US-ASTRAZENECA-2018SF61526

PATIENT
  Sex: Female
  Weight: 86.2 kg

DRUGS (1)
  1. TUDORZA PRESSAIR [Suspect]
     Active Substance: ACLIDINIUM BROMIDE
     Indication: CHRONIC OBSTRUCTIVE PULMONARY DISEASE
     Dosage: 400 MCG., 1 PUFF TWICE A DAY
     Route: 055
     Dates: start: 2016

REACTIONS (2)
  - Device issue [Unknown]
  - Eye disorder [Not Recovered/Not Resolved]
